FAERS Safety Report 9187911 (Version 1)
Quarter: 2013Q1

REPORT INFORMATION
  Report Type: Spontaneous
  Country: US (occurrence: US)
  Receive Date: 20130325
  Receipt Date: 20130325
  Transmission Date: 20140127
  Serious: No
  Sender: FDA-Public Use
  Company Number: US-MYLANLABS-2012S1017741

PATIENT
  Age: 64 Year
  Sex: Female

DRUGS (5)
  1. FENTANYL TRANSDERMAL SYSTEM [Suspect]
     Indication: BONE PAIN
     Dosage: Q72H
     Route: 062
     Dates: start: 201208
  2. TRICOR [Interacting]
     Indication: BLOOD CHOLESTEROL
     Route: 048
     Dates: start: 20120822, end: 20120822
  3. FISH OIL [Interacting]
     Indication: ARTHRITIS
     Route: 048
     Dates: start: 20120822, end: 20120822
  4. COD LIVER OIL [Interacting]
     Indication: ARTHRITIS
     Route: 048
     Dates: start: 20120822, end: 20120822
  5. TASIGNA [Concomitant]
     Indication: LEUKAEMIA
     Route: 048
     Dates: start: 2010

REACTIONS (5)
  - Drug ineffective [Not Recovered/Not Resolved]
  - Bone pain [Not Recovered/Not Resolved]
  - Drug interaction [Not Recovered/Not Resolved]
  - Dizziness [Not Recovered/Not Resolved]
  - Constipation [Not Recovered/Not Resolved]
